FAERS Safety Report 9785614 (Version 1)
Quarter: 2013Q4

REPORT INFORMATION
  Report Type: Spontaneous
  Country: AR (occurrence: None)
  Receive Date: 20131224
  Receipt Date: 20131224
  Transmission Date: 20140711
  Serious: Yes (Hospitalization, Other)
  Sender: FDA-Public Use
  Company Number: VAL_02868_2013

PATIENT
  Sex: Male

DRUGS (1)
  1. PARLODEL [Suspect]
     Indication: PARKINSON^S DISEASE
     Route: 048
     Dates: end: 201310

REACTIONS (5)
  - Tremor [None]
  - Dehydration [None]
  - Hyporeflexia [None]
  - Hypophagia [None]
  - Malaise [None]
